FAERS Safety Report 9960222 (Version 2)
Quarter: 2014Q2

REPORT INFORMATION
  Report Type: Report from Study
  Country: US (occurrence: US)
  Receive Date: 20140305
  Receipt Date: 20140403
  Transmission Date: 20141212
  Serious: Yes (Hospitalization)
  Sender: FDA-Public Use
  Company Number: US-ABBVIE-13P-163-1103232-00

PATIENT
  Age: 43 Year
  Sex: Female

DRUGS (13)
  1. HUMIRA [Suspect]
     Indication: CROHN^S DISEASE
     Dates: start: 20130318
  2. PERCOCET [Concomitant]
     Indication: PAIN
     Dosage: 5/325MG
  3. IBUPROFEN [Concomitant]
     Indication: PAIN
  4. CYMBALTA [Concomitant]
     Indication: DEPRESSION
  5. NEURONTIN [Concomitant]
     Indication: DEPRESSION
     Route: 048
  6. PENTASA [Concomitant]
     Indication: PRODUCT USED FOR UNKNOWN INDICATION
  7. BABY ASPIRIN [Concomitant]
     Indication: CEREBROVASCULAR ACCIDENT PROPHYLAXIS
  8. DEXILANT [Concomitant]
     Indication: GASTROOESOPHAGEAL REFLUX DISEASE
  9. KLONOPIN [Concomitant]
     Indication: INSOMNIA
  10. VITAMIN B12 [Concomitant]
     Indication: FATIGUE
  11. VITAMIN B12 [Concomitant]
     Indication: VITAMIN B12 DEFICIENCY
  12. B COMPLEX [Concomitant]
     Indication: ABDOMINAL PAIN UPPER
     Dosage: VARYING DOSE THROUGHOUT THE MONTH
  13. B6 [Concomitant]
     Indication: ABDOMINAL PAIN UPPER
     Dosage: VARYING DOSE THROUGHOUT THE MONTH

REACTIONS (9)
  - Hernia [Recovered/Resolved]
  - Heart rate increased [Not Recovered/Not Resolved]
  - Weight increased [Not Recovered/Not Resolved]
  - Urinary tract infection [Unknown]
  - Ovarian cyst [Unknown]
  - Melanocytic naevus [Unknown]
  - Vaginal inflammation [Unknown]
  - Postoperative wound infection [Unknown]
  - Premenstrual pain [Unknown]
